FAERS Safety Report 24910298 (Version 1)
Quarter: 2025Q1

REPORT INFORMATION
  Report Type: Report from Study
  Country: US (occurrence: US)
  Receive Date: 20250131
  Receipt Date: 20250131
  Transmission Date: 20250408
  Serious: Yes (Other)
  Sender: ROCHE
  Company Number: US-ROCHE-10000189337

PATIENT
  Sex: Female

DRUGS (3)
  1. FARICIMAB [Suspect]
     Active Substance: FARICIMAB
     Indication: Neovascular age-related macular degeneration
     Route: 050
  2. BROLUCIZUMAB [Concomitant]
     Active Substance: BROLUCIZUMAB
  3. AFLIBERCEPT [Concomitant]
     Active Substance: AFLIBERCEPT

REACTIONS (1)
  - Blindness [Recovered/Resolved]
